FAERS Safety Report 7690137-6 (Version None)
Quarter: 2011Q3

REPORT INFORMATION
  Report Type: 
  Country: None (occurrence: None)
  Receive Date: 20110818
  Receipt Date: 20110817
  Transmission Date: 20111222
  Serious: No
  Sender: FDA-Public Use
  Company Number: US-BAYER-201018528NA

PATIENT
  Sex: Female

DRUGS (3)
  1. MIRENA [Suspect]
     Indication: CONTRACEPTION
     Dosage: 20 MCG/24HR, UNK
     Route: 015
  2. DOXICYCLIN [Concomitant]
     Indication: BRONCHITIS
  3. AMOXICILLIN [Concomitant]

REACTIONS (1)
  - BRONCHITIS [None]
